FAERS Safety Report 8366776-6 (Version None)
Quarter: 2012Q2

REPORT INFORMATION
  Report Type: 
  Country: None (occurrence: None)
  Receive Date: 20120517
  Receipt Date: 20120508
  Transmission Date: 20120825
  Serious: Yes (Hospitalization, Other)
  Sender: FDA-Public Use
  Company Number: US-ASTRAZENECA-2012SE29750

PATIENT
  Age: 17218 Day
  Sex: Male
  Weight: 65.8 kg

DRUGS (6)
  1. FOLIC ACID [Concomitant]
  2. LIPITOR [Concomitant]
  3. SEROQUEL [Suspect]
     Indication: NERVOUS SYSTEM DISORDER
     Dosage: DAILY
     Route: 048
     Dates: start: 20100101, end: 20120301
  4. TRAZIDONE [Concomitant]
  5. NORVASC [Concomitant]
  6. CHLORTHALIDONE [Concomitant]

REACTIONS (9)
  - GAIT DISTURBANCE [None]
  - CEREBROVASCULAR ACCIDENT [None]
  - MOTOR DYSFUNCTION [None]
  - SPLENOMEGALY [None]
  - OFF LABEL USE [None]
  - CHRONIC HEPATIC FAILURE [None]
  - BLOOD GLUCOSE INCREASED [None]
  - BLOOD PRESSURE INCREASED [None]
  - RENAL FAILURE [None]
